FAERS Safety Report 9378970 (Version 1)
Quarter: 2013Q2

REPORT INFORMATION
  Report Type: Spontaneous
  Country: US (occurrence: None)
  Receive Date: 20130626
  Receipt Date: 20130626
  Transmission Date: 20140414
  Serious: Yes (Hospitalization)
  Sender: FDA-Public Use
  Company Number: 001550721A

PATIENT
  Age: 59 Year
  Sex: Female

DRUGS (11)
  1. MEANINGFUL BEAUTY ANTIOXIDANT DAY CREME SPF 20 [Suspect]
     Dosage: TWICE DAILY DERMAL
     Dates: start: 20130122, end: 201305
  2. MEANINGFUL BEAUTY SKIN BRIGHTENING DECOLLETE NECK TREATMENT SPF.15 [Suspect]
     Dosage: TWICE DAILY DERMAL
     Dates: start: 20120122, end: 201305
  3. HYDROCHLOROTHIAZIDE [Concomitant]
  4. DIAZEPAM [Concomitant]
  5. NIACIN [Concomitant]
  6. ZOFRAN [Concomitant]
  7. VITAMIN D3 [Concomitant]
  8. POTASSIUM [Concomitant]
  9. MAGNESIUM OXIDE [Concomitant]
  10. PORPANTHELINE [Concomitant]
  11. HORMONE REPLACEMENT PATCH [Concomitant]

REACTIONS (4)
  - Swelling face [None]
  - Local swelling [None]
  - Dyspnoea [None]
  - Hypersensitivity [None]
